FAERS Safety Report 16943504 (Version 4)
Quarter: 2022Q3

REPORT INFORMATION
  Report Type: Spontaneous
  Country: TR (occurrence: TR)
  Receive Date: 20191022
  Receipt Date: 20220824
  Transmission Date: 20221027
  Serious: Yes (Other)
  Sender: FDA-Public Use
  Company Number: None

PATIENT
  Age: 70 Year
  Sex: Female

DRUGS (1)
  1. HYDROCHLOROTHIAZIDE\VALSARTAN [Suspect]
     Active Substance: HYDROCHLOROTHIAZIDE\VALSARTAN
     Indication: Hypertension
     Dosage: 1 DOSAGE FORM, QD (1X1) AT MORNINGS
     Route: 065
     Dates: start: 2016

REACTIONS (4)
  - Thrombosis [Unknown]
  - Epistaxis [Not Recovered/Not Resolved]
  - Drug hypersensitivity [Unknown]
  - Hypertension [Unknown]
